FAERS Safety Report 6397380-7 (Version None)
Quarter: 2009Q4

REPORT INFORMATION
  Report Type: 
  Country: None (occurrence: None)
  Receive Date: 20091012
  Receipt Date: 20090929
  Transmission Date: 20100525
  Serious: Yes (Other)
  Sender: FDA-Public Use
  Company Number: PHEH2009US05599

PATIENT
  Sex: Female
  Weight: 84 kg

DRUGS (12)
  1. ZOMETA [Suspect]
     Indication: BREAST CANCER METASTATIC
     Dosage: 4 MG OVER 30 MINUTES MONTHLY
     Route: 042
     Dates: start: 20080404, end: 20090526
  2. CALCIUM WITH VITAMIN D [Concomitant]
     Dosage: UNK
     Route: 048
     Dates: start: 20090306
  3. DIPHENHYDRAMINE HCL [Concomitant]
     Indication: HYPERSENSITIVITY
     Dosage: 25 MG, QD
     Route: 048
     Dates: start: 20090306
  4. PRESERVISION /USA/ [Concomitant]
     Dosage: UNK
  5. FUROSEMIDE [Concomitant]
     Dosage: 1/2 OF 40 MG EVERY DAY
     Dates: start: 20080825
  6. LISINOPRIL [Concomitant]
     Dosage: 1/2 20 MG EVERY DAY
     Dates: start: 20090306
  7. METOPROLOL TARTRATE [Concomitant]
     Dosage: 100 MG, BID
     Dates: start: 20081114
  8. ADRIAMYCIN PFS [Concomitant]
     Dosage: 60 MG/M^2 EVERY 2 WEEKS
     Route: 042
     Dates: start: 20080601, end: 20080801
  9. TAXOTERE [Concomitant]
     Dosage: 75 MG/M^2 EVERY 2 WEEKS
     Dates: start: 20080601, end: 20080801
  10. TAXOL [Concomitant]
     Dosage: 150 MG/M^2 EVERY 3 WEEKS
     Route: 042
     Dates: start: 20081001, end: 20090201
  11. CARBOPLATIN [Concomitant]
     Dosage: UNK
     Route: 042
     Dates: start: 20081001, end: 20090201
  12. NEULASTA [Concomitant]
     Dosage: 6 MG EVERY DAY
     Dates: start: 20080601, end: 20090201

REACTIONS (4)
  - MASTECTOMY [None]
  - ORAL SURGERY [None]
  - OSTEONECROSIS [None]
  - PATHOLOGICAL FRACTURE [None]
